FAERS Safety Report 14109989 (Version 1)
Quarter: 2017Q4

REPORT INFORMATION
  Report Type: Spontaneous
  Country: US (occurrence: US)
  Receive Date: 20171020
  Receipt Date: 20171020
  Transmission Date: 20180321
  Serious: Yes (Death, Other)
  Sender: FDA-Public Use
  Company Number: US-TEVA-711849USA

PATIENT
  Age: 22 Year
  Sex: Female

DRUGS (1)
  1. SPRINTEC [Suspect]
     Active Substance: ETHINYL ESTRADIOL\NORGESTIMATE
     Indication: CONTRACEPTION
     Route: 065

REACTIONS (4)
  - Thrombosis [Fatal]
  - Pulmonary embolism [Fatal]
  - Anxiety [Unknown]
  - Hypertension [Unknown]

NARRATIVE: CASE EVENT DATE: 20150426
